FAERS Safety Report 5747615-6 (Version None)
Quarter: 2008Q2

REPORT INFORMATION
  Report Type: 
  Country: None (occurrence: None)
  Receive Date: 20080523
  Receipt Date: 20080519
  Transmission Date: 20081010
  Serious: Yes (Hospitalization)
  Sender: FDA-Public Use
  Company Number: US-ASTRAZENECA-2006UW23097

PATIENT
  Age: 42 Year
  Sex: Female
  Weight: 94.1 kg

DRUGS (2)
  1. SEROQUEL [Suspect]
     Indication: SLEEP DISORDER
     Route: 048
     Dates: start: 20030101, end: 20050101
  2. RISPERDAL [Concomitant]
     Dates: start: 20000101

REACTIONS (2)
  - APPENDICITIS [None]
  - DIABETES MELLITUS [None]
